FAERS Safety Report 16281580 (Version 1)
Quarter: 2019Q2

REPORT INFORMATION
  Report Type: Spontaneous
  Country: US (occurrence: US)
  Receive Date: 20190507
  Receipt Date: 20190507
  Transmission Date: 20190711
  Serious: No
  Sender: FDA-Public Use
  Company Number: US-LEADING PHARMA, LLC-2066713

PATIENT
  Sex: Female

DRUGS (1)
  1. LORAZEPAM. [Suspect]
     Active Substance: LORAZEPAM

REACTIONS (10)
  - Asthenia [None]
  - Anxiety [None]
  - Cortisol increased [None]
  - Dry mouth [None]
  - Panic attack [None]
  - Sleep disorder [None]
  - Headache [None]
  - Off label use [None]
  - Confusional state [None]
  - Dry skin [None]
